FAERS Safety Report 5616179-X (Version None)
Quarter: 2008Q1

REPORT INFORMATION
  Report Type: 
  Country: None (occurrence: None)
  Receive Date: 20080201
  Receipt Date: 20080122
  Transmission Date: 20080703
  Serious: Yes (Hospitalization)
  Sender: FDA-Public Use
  Company Number: 2007BI027315

PATIENT
  Age: 46 Year
  Sex: Female

DRUGS (1)
  1. AVONEX [Suspect]
     Indication: MULTIPLE SCLEROSIS
     Dosage: 30 UG; QW; IM
     Route: 030
     Dates: start: 20040801

REACTIONS (5)
  - DYSMENORRHOEA [None]
  - MENORRHAGIA [None]
  - PELVIC PAIN [None]
  - PELVIC PERITONEAL ADHESIONS [None]
  - UTERINE LEIOMYOMA [None]
